FAERS Safety Report 24800791 (Version 1)
Quarter: 2025Q1

REPORT INFORMATION
  Report Type: Report from Study
  Country: GT (occurrence: GT)
  Receive Date: 20250102
  Receipt Date: 20250102
  Transmission Date: 20250409
  Serious: Yes (Disabling)
  Sender: NOVARTIS
  Company Number: GT-002147023-NVSC2024GT246314

PATIENT
  Age: 46 Year
  Sex: Male

DRUGS (1)
  1. EXFORGE [Suspect]
     Active Substance: AMLODIPINE BESYLATE\VALSARTAN
     Indication: Hypertension
     Dosage: 1 DOSAGE FORM, QD (5/320 MG)
     Route: 048
     Dates: start: 202410, end: 202410

REACTIONS (3)
  - Drug intolerance [Recovering/Resolving]
  - Inflammation [Unknown]
  - Fluid retention [Unknown]

NARRATIVE: CASE EVENT DATE: 20241001
